FAERS Safety Report 5527177-9 (Version None)
Quarter: 2007Q4

REPORT INFORMATION
  Report Type: 
  Country: None (occurrence: None)
  Receive Date: 20071121
  Receipt Date: 20071113
  Transmission Date: 20080405
  Serious: Yes (Hospitalization)
  Sender: FDA-Public Use
  Company Number: US021733

PATIENT
  Age: 35 Year
  Sex: Female

DRUGS (1)
  1. MODAFINIL [Suspect]
     Dosage: ORAL
     Route: 048
     Dates: start: 20060910, end: 20060910

REACTIONS (9)
  - ACIDOSIS [None]
  - ANION GAP INCREASED [None]
  - COMA [None]
  - CONDUCTION DISORDER [None]
  - HYPOTENSION [None]
  - LETHARGY [None]
  - SOMNOLENCE [None]
  - SUICIDE ATTEMPT [None]
  - TACHYCARDIA [None]
